FAERS Safety Report 7648354-7 (Version None)
Quarter: 2011Q3

REPORT INFORMATION
  Report Type: 
  Country: None (occurrence: None)
  Receive Date: 20110801
  Receipt Date: 20110726
  Transmission Date: 20111222
  Serious: Yes (Other)
  Sender: FDA-Public Use
  Company Number: US-PFIZER INC-2009198745

PATIENT
  Age: 22 Year
  Sex: Female
  Weight: 89 kg

DRUGS (9)
  1. CYMBALTA [Suspect]
     Indication: DIABETIC NEUROPATHY
     Dosage: 60 MG, 1X/DAY
     Route: 048
     Dates: start: 20080308
  2. TRIAMCINOLONE [Concomitant]
     Indication: PSORIASIS
     Dosage: 0.1 CREAM AS REQUIRED
     Route: 061
  3. HUMIRA [Suspect]
     Indication: PSORIASIS
     Dosage: 40 MG ONE TIME IN 2 WEEK
     Dates: start: 20090126, end: 20090201
  4. CYMBALTA [Suspect]
     Indication: NEUROPATHY PERIPHERAL
  5. CALCIPOTRIOL [Concomitant]
     Indication: PSORIASIS
     Dosage: UNK
     Route: 061
  6. HYDROXYZINE [Concomitant]
     Indication: PRURITUS
  7. HYDROXYZINE [Concomitant]
     Indication: PSORIASIS
     Dosage: 25 MG, 1X/DAY
     Route: 048
  8. HUMIRA [Suspect]
     Indication: PSORIATIC ARTHROPATHY
  9. LYRICA [Suspect]
     Indication: DIABETIC NEUROPATHY
     Dosage: 200 MG, 3X/DAY
     Route: 048
     Dates: start: 20080313

REACTIONS (5)
  - PAIN [None]
  - HYPERAESTHESIA [None]
  - DIABETIC NEUROPATHY [None]
  - NEURALGIA [None]
  - PAIN IN EXTREMITY [None]
